FAERS Safety Report 8392618-9 (Version None)
Quarter: 2012Q2

REPORT INFORMATION
  Report Type: 
  Country: None (occurrence: None)
  Receive Date: 20120529
  Receipt Date: 20120523
  Transmission Date: 20120825
  Serious: Yes (Hospitalization)
  Sender: FDA-Public Use
  Company Number: PHHY2012GB035206

PATIENT
  Age: 65 Year
  Sex: Female

DRUGS (11)
  1. RAMIPRIL [Suspect]
     Indication: HYPERTENSION
     Dosage: 10 MG, QD
     Route: 048
  2. GAVISCON [Concomitant]
     Dosage: 1 DF, QID
     Route: 048
  3. GLICLAZIDE [Concomitant]
     Dosage: 40 MG, QD
  4. ASPIRIN [Concomitant]
     Dosage: 75 MG, QD
  5. OMEPRAZOLE [Concomitant]
     Dosage: 20 MG, QD
  6. RAMIPRIL [Suspect]
     Indication: DIABETES MELLITUS
  7. CALCIUM/COLECALCIFEROL [Concomitant]
     Dosage: 1 DF, BID
  8. VENTOLIN [Concomitant]
     Dosage: 2 DF, PRN
  9. ATORVASTATIN CALCIUM [Concomitant]
     Dosage: 60 MG, QD
  10. AMLODIPINE BESYLATE [Suspect]
     Indication: HYPERTENSION
     Dosage: 5 MG, QD
     Route: 048
  11. NUTRITION SUPPLEMENTS [Concomitant]

REACTIONS (4)
  - FALL [None]
  - BRAIN NATRIURETIC PEPTIDE INCREASED [None]
  - HYPOTENSION [None]
  - JOINT SWELLING [None]
